FAERS Safety Report 9199039 (Version 1)
Quarter: 2013Q1

REPORT INFORMATION
  Report Type: Report from Study
  Country: DE (occurrence: DE)
  Receive Date: 20130329
  Receipt Date: 20130329
  Transmission Date: 20140127
  Serious: Yes (Death, Life-Threatening, Hospitalization)
  Sender: FDA-Public Use
  Company Number: DE-009507513-2011SP035464

PATIENT
  Age: 78 Year
  Sex: Female
  Weight: 70 kg

DRUGS (19)
  1. TEMODAL [Suspect]
     Indication: GLIOBLASTOMA
     Dosage: 145 MG, QD
     Route: 048
     Dates: start: 20101116
  2. DEXAMETHASONE [Concomitant]
     Dosage: 4 MG, UNK
     Dates: start: 20101025, end: 20101216
  3. DEXAMETHASONE [Concomitant]
     Dosage: 12 MG, UNK
     Dates: start: 20101217, end: 20101225
  4. DEXAMETHASONE [Concomitant]
     Dosage: 16 MG, UNK
     Dates: start: 20101226, end: 20110102
  5. DEXAMETHASONE [Concomitant]
     Dosage: 6 MG, UNK
     Dates: start: 20110104, end: 20110107
  6. DEXAMETHASONE [Concomitant]
     Dosage: 4 MG, UNK
     Dates: start: 20110108, end: 20110109
  7. DEXAMETHASONE [Concomitant]
     Dosage: 6 MG, UNK
     Dates: start: 20110110
  8. BELOC-ZOK [Concomitant]
     Dosage: 47.5 MG, UNK
  9. PANTOPRAZOLE [Concomitant]
     Dosage: 20 MG, UNK
  10. ASPIRIN [Concomitant]
     Dosage: 100 MG, UNK
  11. ZOFRAN [Concomitant]
     Dosage: 12 MG, UNK
     Dates: start: 20101116
  12. MOVICOL [Concomitant]
     Dosage: ONE BAG
     Dates: start: 20101119, end: 20110105
  13. HEPARIN [Concomitant]
     Dosage: UNK
     Dates: start: 20101126, end: 20101227
  14. CIPROFLOXACIN [Concomitant]
     Dosage: UNK
     Dates: start: 20110107, end: 201101
  15. DIAZEPAM [Concomitant]
     Dosage: UNK
  16. CLEXANE (ENOXAPARIN SODIUM) [Concomitant]
     Dosage: 0.4 ML, UNK
     Dates: start: 20110110
  17. TAZOBACTAM [Concomitant]
     Dosage: UNK
  18. ACETAMINOPHEN [Concomitant]
     Dosage: 500 MG, UNK
  19. NOVALGIN (DIPYRONE) [Concomitant]
     Dosage: 500 MG, UNK

REACTIONS (4)
  - General physical health deterioration [Fatal]
  - General physical condition abnormal [Recovered/Resolved with Sequelae]
  - Thrombocytopenia [Recovered/Resolved]
  - Convulsion [Recovered/Resolved]
